FAERS Safety Report 9510723 (Version 1)
Quarter: 2013Q3

REPORT INFORMATION
  Report Type: Spontaneous
  Country: CA (occurrence: CA)
  Receive Date: 20130909
  Receipt Date: 20130909
  Transmission Date: 20140515
  Serious: Yes (Other)
  Sender: FDA-Public Use
  Company Number: CA-AMGEN-CANSP2013062761

PATIENT
  Age: 31 Year
  Sex: Female

DRUGS (1)
  1. ENBREL [Suspect]
     Indication: ANKYLOSING SPONDYLITIS
     Dosage: 25 MG, UNK
     Route: 065
     Dates: start: 20120922

REACTIONS (4)
  - Pituitary tumour [Not Recovered/Not Resolved]
  - Disease complication [Not Recovered/Not Resolved]
  - Infection [Not Recovered/Not Resolved]
  - Fluid retention [Not Recovered/Not Resolved]
